FAERS Safety Report 5380080-X (Version None)
Quarter: 2007Q3

REPORT INFORMATION
  Report Type: 
  Country: None (occurrence: None)
  Receive Date: 20070706
  Receipt Date: 20070418
  Transmission Date: 20080115
  Serious: No
  Sender: FDA-Public Use
  Company Number: A0647836A

PATIENT
  Age: 67 Year
  Sex: Female

DRUGS (10)
  1. TYKERB [Suspect]
     Indication: BREAST CANCER
     Dosage: 4TAB PER DAY
     Route: 048
     Dates: start: 20070407, end: 20070417
  2. SYNTHROID [Concomitant]
  3. DIGOXIN [Concomitant]
  4. METOPROLOL SUCCINATE [Concomitant]
  5. COMPAZINE [Concomitant]
  6. IMODIUM [Concomitant]
  7. OXYCONTIN [Concomitant]
  8. OXY-IR [Concomitant]
  9. OCEAN NASAL SPRAY [Concomitant]
  10. PRILOSEC [Concomitant]

REACTIONS (5)
  - DIARRHOEA [None]
  - EAR DISCOMFORT [None]
  - NASAL CONGESTION [None]
  - NAUSEA [None]
  - VOMITING [None]
